FAERS Safety Report 5618254-2 (Version None)
Quarter: 2008Q1

REPORT INFORMATION
  Report Type: 
  Country: None (occurrence: None)
  Receive Date: 20080207
  Receipt Date: 20080129
  Transmission Date: 20080703
  Serious: Yes (Life-Threatening, Hospitalization, Other)
  Sender: FDA-Public Use
  Company Number: US-ROCHE-535064

PATIENT
  Age: 84 Year
  Sex: Female
  Weight: 62.6 kg

DRUGS (13)
  1. BONIVA [Suspect]
     Indication: OSTEOPOROSIS
     Route: 042
     Dates: start: 20071112, end: 20071112
  2. VERAPAMIL EXTENDED-RELEASE [Concomitant]
     Dosage: ^180 DAILY^
  3. GLUCOVANCE [Concomitant]
     Dosage: ^5/500^
  4. CRESTOR [Concomitant]
     Dosage: ^10 DAILY^
  5. ZESTRIL [Concomitant]
     Dosage: ^20 DAILY^
  6. INDAPAMIDE [Concomitant]
     Dosage: ^1.25 DAILY^
  7. CALCIUM GLUCONATE [Concomitant]
     Dosage: ^PLUS D DAILY^
  8. AVANDIA [Concomitant]
     Dosage: ^4 DAILY^
  9. ASPIRIN [Concomitant]
     Dosage: 325 DAILY
  10. FERROUS SULFATE TAB [Concomitant]
     Dosage: 2 DAILY
  11. D VITAMINE [Concomitant]
  12. SENSIPAR [Concomitant]
  13. JANUVIA [Concomitant]
     Dates: start: 20071101

REACTIONS (8)
  - ASTHENIA [None]
  - BLOOD GLUCOSE DECREASED [None]
  - FALL [None]
  - HAEMATOCRIT DECREASED [None]
  - OCCULT BLOOD POSITIVE [None]
  - OEDEMA [None]
  - PROTEIN URINE PRESENT [None]
  - RENAL FAILURE [None]
